FAERS Safety Report 6454363-6 (Version None)
Quarter: 2009Q4

REPORT INFORMATION
  Report Type: 
  Country: None (occurrence: None)
  Receive Date: 20091124
  Receipt Date: 20091120
  Transmission Date: 20100525
  Serious: Yes (Hospitalization)
  Sender: FDA-Public Use
  Company Number: GB-JNJFOC-20091106063

PATIENT
  Age: 25 Year
  Sex: Male

DRUGS (5)
  1. IBUPROFEN [Suspect]
     Indication: PAIN
     Route: 048
  2. PSEUDOEPHEDRINE HCL [Suspect]
     Indication: NASOPHARYNGITIS
  3. PREGABALIN [Suspect]
     Indication: PAIN
     Route: 048
  4. REMERON [Suspect]
     Indication: DEPRESSION
     Route: 048
  5. OXYCODONE HCL [Concomitant]
     Indication: PAIN
     Route: 048

REACTIONS (1)
  - PYREXIA [None]
